FAERS Safety Report 13367905 (Version 1)
Quarter: 2017Q1

REPORT INFORMATION
  Report Type: Spontaneous
  Country: GB (occurrence: GB)
  Receive Date: 20170324
  Receipt Date: 20170324
  Transmission Date: 20170429
  Serious: Yes (Other)
  Sender: FDA-Public Use
  Company Number: GB-ACCORD-049478

PATIENT
  Age: 49 Year
  Sex: Female
  Weight: 90.26 kg

DRUGS (4)
  1. RAMIPRIL. [Suspect]
     Active Substance: RAMIPRIL
     Indication: HYPERTENSION
     Dosage: RECEIVED 2.5 MG FROM 16-JAN-2017 TO 23-JAN-2017 AND THEN 5 MG FROM 24-JAN-2017 TO 07-FEB-2017
     Route: 048
     Dates: start: 20170116, end: 20170207
  2. RAMIPRIL. [Suspect]
     Active Substance: RAMIPRIL
     Indication: HYPERTENSION
     Route: 048
     Dates: start: 20170124, end: 20170207
  3. LOSARTAN. [Suspect]
     Active Substance: LOSARTAN
     Indication: HYPERTENSION
     Route: 048
     Dates: start: 20170210, end: 20170223
  4. CERAZETTE [Concomitant]
     Active Substance: DESOGESTREL

REACTIONS (5)
  - Malaise [Not Recovered/Not Resolved]
  - Choking [Unknown]
  - Dyspnoea [Unknown]
  - Headache [Not Recovered/Not Resolved]
  - Cough [Not Recovered/Not Resolved]
